FAERS Safety Report 5422976-6 (Version None)
Quarter: 2007Q3

REPORT INFORMATION
  Report Type: 
  Country: None (occurrence: None)
  Receive Date: 20070822
  Receipt Date: 20070814
  Transmission Date: 20080115
  Serious: Yes (Hospitalization)
  Sender: FDA-Public Use
  Company Number: US-ABBOTT-07P-163-0378033-00

PATIENT
  Sex: Male
  Weight: 85.352 kg

DRUGS (1)
  1. HUMIRA [Suspect]
     Indication: CROHN'S DISEASE
     Route: 058
     Dates: start: 20070601

REACTIONS (4)
  - HAEMOGLOBIN DECREASED [None]
  - HALLUCINATION [None]
  - HYPOTENSION [None]
  - PYREXIA [None]
